FAERS Safety Report 5415489-9 (Version None)
Quarter: 2007Q3

REPORT INFORMATION
  Report Type: 
  Country: None (occurrence: None)
  Receive Date: 20070813
  Receipt Date: 20070809
  Transmission Date: 20080115
  Serious: Yes (Death)
  Sender: FDA-Public Use
  Company Number: TCI2007A02216

PATIENT
  Age: 78 Year
  Sex: Male

DRUGS (4)
  1. LEUPROLIDE ACETATE [Suspect]
     Indication: PROSTATE CANCER STAGE II
     Dosage: 11.25 MG (11.25 MG, 1 IN 1 12 WK)
     Route: 058
     Dates: start: 20070122, end: 20070122
  2. CHLORMADINONE ACETATE TAB [Concomitant]
  3. CERNILTON (CERNILTON /00521401/) (TABLETS) [Concomitant]
  4. URIEF (SILODOSIN) (CAPSULES) [Concomitant]

REACTIONS (2)
  - CARDIAC FAILURE ACUTE [None]
  - FALL [None]
